FAERS Safety Report 10662021 (Version 2)
Quarter: 2014Q4

REPORT INFORMATION
  Report Type: Spontaneous
  Country: JP (occurrence: JP)
  Receive Date: 20141218
  Receipt Date: 20141224
  Transmission Date: 20150529
  Serious: Yes (Hospitalization)
  Sender: FDA-Public Use
  Company Number: JP-PFIZER INC-2014346846

PATIENT
  Age: 73 Year
  Sex: Male

DRUGS (3)
  1. CISPLATIN. [Suspect]
     Active Substance: CISPLATIN
     Indication: SMALL CELL LUNG CANCER
     Dosage: 60 MG/M2, 1X/DAY
     Route: 041
     Dates: start: 20100618, end: 20100618
  2. CAMPTO [Suspect]
     Active Substance: IRINOTECAN
     Indication: SMALL CELL LUNG CANCER
     Dosage: 60 MG/M2, 1X/DAY
     Route: 041
     Dates: start: 20100618
  3. CISPLATIN. [Suspect]
     Active Substance: CISPLATIN
     Dosage: 60 MG/M2, 1X/DAY
     Route: 041
     Dates: start: 20100716, end: 20100716

REACTIONS (2)
  - Diarrhoea [Recovered/Resolved]
  - Intestinal tuberculosis [Recovering/Resolving]

NARRATIVE: CASE EVENT DATE: 2010
